FAERS Safety Report 7812215-0 (Version None)
Quarter: 2011Q4

REPORT INFORMATION
  Report Type: 
  Country: None (occurrence: None)
  Receive Date: 20111013
  Receipt Date: 20111005
  Transmission Date: 20120403
  Serious: Yes (Hospitalization, Other)
  Sender: FDA-Public Use
  Company Number: US-ELI_LILLY_AND_COMPANY-US201110001552

PATIENT
  Age: 73 Year
  Sex: Female

DRUGS (6)
  1. HUMULIN N [Suspect]
     Indication: TYPE 1 DIABETES MELLITUS
     Dosage: 18 U, EACH MORNING
  2. HUMULIN N [Suspect]
     Dosage: UNK UNK, PRN
  3. HUMULIN R [Suspect]
     Indication: TYPE 1 DIABETES MELLITUS
     Dosage: 2 U, EACH MORNING
  4. HUMULIN N [Suspect]
     Dosage: 18 U, EACH MORNING
  5. HUMULIN N [Suspect]
     Dosage: UNK UNK, PRN
  6. HUMULIN R [Suspect]
     Dosage: UNK UNK, PRN

REACTIONS (7)
  - DYSPNOEA [None]
  - ARTERIAL OCCLUSIVE DISEASE [None]
  - BLOOD GLUCOSE DECREASED [None]
  - HOSPITALISATION [None]
  - BLOOD GLUCOSE INCREASED [None]
  - ULCER HAEMORRHAGE [None]
  - DRUG INEFFECTIVE [None]
